FAERS Safety Report 9128584 (Version 1)
Quarter: 2013Q1

REPORT INFORMATION
  Report Type: Spontaneous
  Country: US (occurrence: US)
  Receive Date: 20130228
  Receipt Date: 20130228
  Transmission Date: 20140127
  Serious: No
  Sender: FDA-Public Use
  Company Number: US-ASTRAZENECA-2011SE13416

PATIENT
  Age: 59 Year
  Sex: Male

DRUGS (2)
  1. OMEPRAZOLE [Suspect]
     Route: 048
  2. NEXIUM [Suspect]
     Route: 048

REACTIONS (5)
  - Cough [Unknown]
  - Lung disorder [Unknown]
  - Erosive oesophagitis [Unknown]
  - Intentional drug misuse [Unknown]
  - Drug ineffective [Unknown]
